FAERS Safety Report 19850479 (Version 1)
Quarter: 2021Q3

REPORT INFORMATION
  Report Type: Report from Study
  Country: CR (occurrence: CR)
  Receive Date: 20210918
  Receipt Date: 20210918
  Transmission Date: 20211014
  Serious: Yes (Other)
  Sender: FDA-Public Use
  Company Number: NVSC2021CR211310

PATIENT
  Age: 60 Year
  Sex: Female

DRUGS (1)
  1. EXFORGE HCT [Suspect]
     Active Substance: AMLODIPINE BESYLATE\HYDROCHLOROTHIAZIDE\VALSARTAN
     Indication: PRODUCT USED FOR UNKNOWN INDICATION
     Dosage: 1 DF (10/320/25 MG) (STARTED APPROXIMATELY SINCE JUN 2021)
     Route: 065
     Dates: end: 20210825

REACTIONS (3)
  - Lymphoedema [Unknown]
  - Peripheral swelling [Unknown]
  - Ill-defined disorder [Unknown]
